FAERS Safety Report 25184748 (Version 1)
Quarter: 2025Q2

REPORT INFORMATION
  Report Type: Spontaneous
  Country: US (occurrence: None)
  Receive Date: 20250410
  Receipt Date: 20250410
  Transmission Date: 20250716
  Serious: Yes (Life-Threatening, Hospitalization)
  Sender: FDA-CTU
  Company Number: None

PATIENT
  Age: 31 Year
  Sex: Female
  Weight: 74.4 kg

DRUGS (5)
  1. AIMOVIG [Suspect]
     Active Substance: ERENUMAB-AOOE
     Indication: Migraine
     Route: 058
     Dates: start: 20250329, end: 20250330
  2. DULOXETINE [Concomitant]
     Active Substance: DULOXETINE
  3. PREGABALIN [Concomitant]
     Active Substance: PREGABALIN
  4. PRAZOSIN [Concomitant]
     Active Substance: PRAZOSIN
  5. LABETALOL [Concomitant]
     Active Substance: LABETALOL

REACTIONS (6)
  - Angioedema [None]
  - Throat tightness [None]
  - Cough [None]
  - Chest pain [None]
  - Tachypnoea [None]
  - Tachycardia [None]

NARRATIVE: CASE EVENT DATE: 20250330
